FAERS Safety Report 6924235 (Version 2)
Quarter: 2020Q3

REPORT INFORMATION
  Report Type: Spontaneous
  Country: JP (occurrence: JP)
  Receive Date: 20090227
  Receipt Date: 20090318
  Transmission Date: 20201105
  Serious: Yes (Other)
  Sender: FDA-Public Use
  Company Number: JP-BAUSCH-2009BL000694

PATIENT
  Age: 30 Year
  Sex: Female
  Weight: 58 kg

DRUGS (13)
  1. ATROPINE. [Suspect]
     Active Substance: ATROPINE
     Indication: HEART RATE DECREASED
     Route: 042
     Dates: start: 200812, end: 200812
  2. VASOPRESSIN INJECTION [Concomitant]
     Dates: start: 200812, end: 200812
  3. ATROPINE. [Suspect]
     Active Substance: ATROPINE
     Indication: BLOOD PRESSURE DECREASED
     Route: 042
     Dates: start: 200812, end: 200812
  4. EPHEDRINE. [Suspect]
     Active Substance: EPHEDRINE
     Indication: HEART RATE DECREASED
     Route: 042
     Dates: start: 200812, end: 200812
  5. THIOPENTAL SODIUM. [Concomitant]
     Active Substance: THIOPENTAL SODIUM
     Route: 042
     Dates: start: 200812, end: 200812
  6. SEVOFLURANE. [Concomitant]
     Active Substance: SEVOFLURANE
     Dates: start: 200812, end: 200812
  7. NITROUS OXIDE. [Concomitant]
     Active Substance: NITROUS OXIDE
     Dates: start: 200812, end: 200812
  8. MIDAZOLAM HYDROCHLORIDE. [Concomitant]
     Active Substance: MIDAZOLAM HYDROCHLORIDE
     Route: 030
     Dates: start: 200812, end: 200812
  9. VECURONIUM BROMIDE. [Concomitant]
     Active Substance: VECURONIUM BROMIDE
     Route: 042
     Dates: start: 200812, end: 200812
  10. EPHEDRINE. [Suspect]
     Active Substance: EPHEDRINE
     Indication: BLOOD PRESSURE DECREASED
     Route: 042
     Dates: start: 200812, end: 200812
  11. OXYGEN. [Concomitant]
     Active Substance: OXYGEN
     Dates: start: 200812, end: 200812
  12. FENTANYL. [Concomitant]
     Active Substance: FENTANYL
     Route: 008
     Dates: start: 200812, end: 200812
  13. MEPIVACAINE HYDROCHLORIDE. [Concomitant]
     Active Substance: MEPIVACAINE HYDROCHLORIDE
     Route: 008
     Dates: start: 200812, end: 200812

REACTIONS (2)
  - Electrocardiogram ST segment depression [Recovered/Resolved]
  - Ventricular extrasystoles [Recovered/Resolved]

NARRATIVE: CASE EVENT DATE: 20081201
